FAERS Safety Report 10522635 (Version 2)
Quarter: 2014Q4

REPORT INFORMATION
  Report Type: Report from Study
  Country: RU (occurrence: RU)
  Receive Date: 20141016
  Receipt Date: 20141111
  Transmission Date: 20150528
  Serious: Yes (Hospitalization)
  Sender: FDA-Public Use
  Company Number: RU-UCBSA-2014014345

PATIENT
  Age: 11 Year
  Sex: Female
  Weight: 34.1 kg

DRUGS (3)
  1. CERTOLIZUMAB PEGOL JIA [Suspect]
     Active Substance: CERTOLIZUMAB PEGOL
     Indication: JUVENILE IDIOPATHIC ARTHRITIS
     Dosage: 100 MG, UNK
     Route: 058
     Dates: start: 20140908, end: 20140922
  2. JOSAMYCIN [Concomitant]
     Active Substance: JOSAMYCIN
     Indication: RESPIRATORY TRACT INFECTION
     Dosage: 500 MG, 2X/DAY (BID)
     Route: 048
     Dates: start: 20140926, end: 20141005
  3. CEFAZOLIN [Concomitant]
     Active Substance: CEFAZOLIN
     Indication: RESPIRATORY TRACT INFECTION
     Dosage: 125 MG, 2X/DAY (BID)
     Route: 048
     Dates: start: 20140921, end: 20140925

REACTIONS (1)
  - Drug hypersensitivity [Recovered/Resolved]

NARRATIVE: CASE EVENT DATE: 20141006
